FAERS Safety Report 4524582-4 (Version None)
Quarter: 2004Q4

REPORT INFORMATION
  Report Type: 
  Country: None (occurrence: None)
  Receive Date: 20041117
  Receipt Date: 20040629
  Transmission Date: 20050328
  Serious: Yes (Life-Threatening)
  Sender: FDA-Public Use
  Company Number: US-JNJFOC-20040704954

PATIENT
  Age: 69 Year
  Sex: Female
  Weight: 84.5958 kg

DRUGS (1)
  1. LEVOFLOXACIN [Suspect]
     Indication: DRUG USE FOR UNKNOWN INDICATION
     Dosage: 500 MG, ORAL
     Route: 048
     Dates: start: 20021001, end: 20021007

REACTIONS (1)
  - TORSADE DE POINTES [None]
